FAERS Safety Report 4377896-5 (Version None)
Quarter: 2004Q2

REPORT INFORMATION
  Report Type: 
  Country: None (occurrence: None)
  Receive Date: 20040615
  Receipt Date: 20040615
  Transmission Date: 20050107
  Serious: Yes (Other)
  Sender: FDA-Public Use
  Company Number: None

PATIENT
  Age: 80 Year
  Sex: Female
  Weight: 54.4316 kg

DRUGS (4)
  1. AMBIEN [Suspect]
     Indication: SLEEP DISORDER
     Dosage: 5 MG X 1
  2. ASPIRIN [Concomitant]
  3. AMIODARONE HCL [Concomitant]
  4. LASIX [Concomitant]

REACTIONS (3)
  - CONFUSIONAL STATE [None]
  - FALL [None]
  - WRIST FRACTURE [None]
